FAERS Safety Report 16535640 (Version 4)
Quarter: 2019Q3

REPORT INFORMATION
  Report Type: Spontaneous
  Country: JP (occurrence: JP)
  Receive Date: 20190705
  Receipt Date: 20190911
  Transmission Date: 20191004
  Serious: Yes (Life-Threatening, Other)
  Sender: FDA-Public Use
  Company Number: JP-ALLERGAN-1916886US

PATIENT
  Sex: Female

DRUGS (23)
  1. BOTOX [Suspect]
     Active Substance: ONABOTULINUMTOXINA
     Dosage: 12.5 UNITS, SINGLE
     Route: 030
     Dates: start: 20170814, end: 20170814
  2. PROPRANOLOL HCL [Concomitant]
     Active Substance: PROPRANOLOL HYDROCHLORIDE
     Dosage: 2 DF
  3. SENNA [Concomitant]
     Active Substance: SENNA LEAF\SENNOSIDES\SENNOSIDES A AND B
  4. BOTOX [Suspect]
     Active Substance: ONABOTULINUMTOXINA
     Dosage: 25 UNITS, SINGLE
     Route: 030
     Dates: start: 20181210, end: 20181210
  5. BOTOX [Suspect]
     Active Substance: ONABOTULINUMTOXINA
     Dosage: 12.5 UNITS, SINGLE
     Route: 030
     Dates: start: 20150318, end: 20150318
  6. MAGMITT [Concomitant]
     Active Substance: MAGNESIUM OXIDE
     Dosage: 990 MG
  7. BOTOX [Suspect]
     Active Substance: ONABOTULINUMTOXINA
     Dosage: 12.5 UNITS, SINGLE
     Route: 030
     Dates: start: 20180604, end: 20180604
  8. BOTOX [Suspect]
     Active Substance: ONABOTULINUMTOXINA
     Dosage: 12.5 UNITS, SINGLE
     Route: 030
     Dates: start: 20180305, end: 20180305
  9. BOTOX [Suspect]
     Active Substance: ONABOTULINUMTOXINA
     Dosage: 12.5 UNITS, SINGLE
     Route: 030
     Dates: start: 20160305, end: 20160305
  10. ETIZOLAM [Concomitant]
     Active Substance: ETIZOLAM
     Dosage: 0.5 MG, TID
  11. BOTOX [Suspect]
     Active Substance: ONABOTULINUMTOXINA
     Indication: BLEPHAROSPASM
     Dosage: 25 UNITS, SINGLE
     Route: 030
     Dates: start: 20190328, end: 20190328
  12. BOTOX [Suspect]
     Active Substance: ONABOTULINUMTOXINA
     Dosage: 12.5 UNITS, SINGLE
     Route: 030
     Dates: start: 20171120, end: 20171120
  13. BOTOX [Suspect]
     Active Substance: ONABOTULINUMTOXINA
     Dosage: 12.5 UNITS, SINGLE
     Route: 030
     Dates: start: 20170123, end: 20170123
  14. BOTOX [Suspect]
     Active Substance: ONABOTULINUMTOXINA
     Dosage: 12.5 UNITS, SINGLE
     Route: 030
     Dates: start: 20150725, end: 20150725
  15. BOTOX [Suspect]
     Active Substance: ONABOTULINUMTOXINA
     Dosage: 12.5 UNITS, SINGLE
     Route: 030
     Dates: start: 20180903, end: 20180903
  16. BOTOX [Suspect]
     Active Substance: ONABOTULINUMTOXINA
     Dosage: 12.5 UNITS, SINGLE
     Route: 030
     Dates: start: 20170424, end: 20170424
  17. BOTOX [Suspect]
     Active Substance: ONABOTULINUMTOXINA
     Dosage: 12.5 UNITS, SINGLE
     Route: 030
     Dates: start: 20160711, end: 20160711
  18. LANSOPRAZOL [Concomitant]
     Active Substance: LANSOPRAZOLE
     Dosage: 15 MG
  19. MADOPAR [Concomitant]
     Active Substance: BENSERAZIDE HYDROCHLORIDE\LEVODOPA
     Dosage: 1 DF, QID
  20. LAC-B N [Concomitant]
     Dosage: 3 G
  21. AMANTADINE HCL [Concomitant]
     Active Substance: AMANTADINE HYDROCHLORIDE
     Dosage: 100 MG
  22. BOTOX [Suspect]
     Active Substance: ONABOTULINUMTOXINA
     Dosage: 12.5 UNITS, SINGLE
     Route: 030
     Dates: start: 20151107, end: 20151107
  23. LANDSEN [Concomitant]
     Active Substance: CLONAZEPAM
     Dosage: 0.5 UNK, UNK

REACTIONS (15)
  - Generalised erythema [Recovered/Resolved]
  - Hypotension [Recovered/Resolved]
  - Circulatory collapse [Recovered/Resolved]
  - Therapeutic product effect incomplete [Unknown]
  - Shock [Recovered/Resolved]
  - Pneumonia aspiration [Recovered/Resolved]
  - Hypersensitivity [Unknown]
  - Rash pruritic [Recovered/Resolved]
  - Anaphylactic reaction [Recovered/Resolved]
  - Depressed level of consciousness [Recovered/Resolved]
  - Dysphagia [Not Recovered/Not Resolved]
  - Pyrexia [Recovered/Resolved]
  - Blood pressure decreased [Recovered/Resolved]
  - Erythema [Unknown]
  - Face oedema [Recovered/Resolved]

NARRATIVE: CASE EVENT DATE: 201903
